FAERS Safety Report 17893659 (Version 1)
Quarter: 2020Q2

REPORT INFORMATION
  Report Type: Spontaneous
  Country: CN (occurrence: CN)
  Receive Date: 20200615
  Receipt Date: 20200615
  Transmission Date: 20200714
  Serious: Yes (Other)
  Sender: FDA-Public Use
  Company Number: CN-ROCHE-2620981

PATIENT
  Age: 79 Year
  Sex: Female

DRUGS (13)
  1. CYCLOPHOSPHAMIDE. [Concomitant]
     Active Substance: CYCLOPHOSPHAMIDE
     Route: 041
     Dates: start: 20190425
  2. CYCLOPHOSPHAMIDE. [Concomitant]
     Active Substance: CYCLOPHOSPHAMIDE
     Route: 042
     Dates: start: 20190504
  3. TRAMADOL. [Concomitant]
     Active Substance: TRAMADOL
     Indication: CHRONIC LYMPHOCYTIC LEUKAEMIA
     Route: 065
  4. CYCLOPHOSPHAMIDE. [Concomitant]
     Active Substance: CYCLOPHOSPHAMIDE
     Route: 041
     Dates: start: 20190502
  5. IBRUTINIB [Concomitant]
     Active Substance: IBRUTINIB
     Indication: CHRONIC LYMPHOCYTIC LEUKAEMIA
     Route: 048
     Dates: start: 20190506
  6. PAMIDRONATE DISODIUM. [Concomitant]
     Active Substance: PAMIDRONATE DISODIUM
     Indication: CHRONIC LYMPHOCYTIC LEUKAEMIA
     Dosage: THERAPY DETAIL WAS UNKNOWN
     Route: 065
  7. LENALIDOMIDE [Concomitant]
     Active Substance: LENALIDOMIDE
     Indication: CHRONIC LYMPHOCYTIC LEUKAEMIA
     Dosage: 5 CYCLES
     Route: 065
  8. IBRUTINIB [Concomitant]
     Active Substance: IBRUTINIB
     Route: 048
  9. CYCLOPHOSPHAMIDE. [Concomitant]
     Active Substance: CYCLOPHOSPHAMIDE
     Indication: CHRONIC LYMPHOCYTIC LEUKAEMIA
     Dosage: 2 DAYS
     Route: 065
     Dates: start: 20190221
  10. MABTHERA [Suspect]
     Active Substance: RITUXIMAB
     Indication: CHRONIC LYMPHOCYTIC LEUKAEMIA
     Dosage: 5 CYCLES
     Route: 065
     Dates: start: 20190210
  11. CYCLOPHOSPHAMIDE. [Concomitant]
     Active Substance: CYCLOPHOSPHAMIDE
     Route: 041
     Dates: start: 20190422
  12. VORICONAZOLE. [Concomitant]
     Active Substance: VORICONAZOLE
     Route: 065
  13. CYCLOPHOSPHAMIDE. [Concomitant]
     Active Substance: CYCLOPHOSPHAMIDE
     Route: 041
     Dates: start: 20190420

REACTIONS (2)
  - Pneumonia [Unknown]
  - Lung neoplasm [Unknown]
